FAERS Safety Report 20891058 (Version 4)
Quarter: 2022Q4

REPORT INFORMATION
  Report Type: Spontaneous
  Country: IT (occurrence: IT)
  Receive Date: 20220530
  Receipt Date: 20221124
  Transmission Date: 20230113
  Serious: Yes (Hospitalization)
  Sender: FDA-Public Use
  Company Number: IT-NOVARTISPH-NVSC2022IT118687

PATIENT
  Age: 64 Year
  Sex: Female
  Weight: 62 kg

DRUGS (37)
  1. EXEMESTANE [Suspect]
     Active Substance: EXEMESTANE
     Indication: HER2 positive breast cancer
     Dosage: 25 MG, QD (OD: ONCE DAILY)
     Route: 048
     Dates: start: 20190801, end: 20201021
  2. EXEMESTANE [Suspect]
     Active Substance: EXEMESTANE
     Indication: Breast cancer
  3. DOCETAXEL [Suspect]
     Active Substance: DOCETAXEL
     Indication: HER2 positive breast cancer
     Dosage: 120 MG, TIW Q3W - EVERY 3 WEEKS (MOST RECENT DOSE PRIOR TO AE 11 JUL 2019)
     Route: 042
     Dates: start: 20190418
  4. DOCETAXEL [Suspect]
     Active Substance: DOCETAXEL
     Indication: Breast cancer
  5. PERTUZUMAB [Suspect]
     Active Substance: PERTUZUMAB
     Indication: HER2 positive breast cancer
     Dosage: 420 MG, TIW (Q3W - EVERY 3 WEEKS)
     Route: 042
     Dates: start: 20190418, end: 20190926
  6. PERTUZUMAB [Suspect]
     Active Substance: PERTUZUMAB
     Indication: Breast cancer
  7. ADO-TRASTUZUMAB EMTANSINE [Suspect]
     Active Substance: ADO-TRASTUZUMAB EMTANSINE
     Indication: HER2 positive breast cancer
     Dosage: 205 MG, TIW
     Route: 042
     Dates: start: 20201021, end: 20210609
  8. ADO-TRASTUZUMAB EMTANSINE [Suspect]
     Active Substance: ADO-TRASTUZUMAB EMTANSINE
     Indication: Breast cancer
     Dosage: 205 MG, TIW
     Route: 042
     Dates: start: 20201021, end: 20210609
  9. ADO-TRASTUZUMAB EMTANSINE [Suspect]
     Active Substance: ADO-TRASTUZUMAB EMTANSINE
     Dosage: 185 MG, TIW
     Route: 042
     Dates: start: 20210609, end: 20210630
  10. ADO-TRASTUZUMAB EMTANSINE [Suspect]
     Active Substance: ADO-TRASTUZUMAB EMTANSINE
     Dosage: 170 MG, TIW
     Route: 042
     Dates: start: 20210630, end: 20220105
  11. ADO-TRASTUZUMAB EMTANSINE [Suspect]
     Active Substance: ADO-TRASTUZUMAB EMTANSINE
     Dosage: 134 MG, TIW
     Route: 042
     Dates: start: 20220126
  12. NALOXONE HYDROCHLORIDE\OXYCODONE HYDROCHLORIDE [Concomitant]
     Active Substance: NALOXONE HYDROCHLORIDE\OXYCODONE HYDROCHLORIDE
     Indication: Product used for unknown indication
     Dosage: 10 MG (0.5 DAY)
     Route: 065
     Dates: start: 20201007, end: 20201020
  13. NALOXONE HYDROCHLORIDE\OXYCODONE HYDROCHLORIDE [Concomitant]
     Active Substance: NALOXONE HYDROCHLORIDE\OXYCODONE HYDROCHLORIDE
     Dosage: 5 MG, QD
     Route: 065
     Dates: start: 20201021
  14. GRANISETRON [Concomitant]
     Active Substance: GRANISETRON
     Indication: Breast cancer
     Dosage: 1 MG, TIW
     Route: 065
     Dates: start: 20190328, end: 20190711
  15. GRANISETRON [Concomitant]
     Active Substance: GRANISETRON
     Dosage: 1 MG, TIW
     Route: 065
     Dates: start: 20201021
  16. EDOXABAN [Concomitant]
     Active Substance: EDOXABAN
     Indication: Left ventricular dysfunction
     Dosage: 30 MG, QD
     Route: 065
     Dates: start: 20191009
  17. EDOXABAN [Concomitant]
     Active Substance: EDOXABAN
     Dosage: 30 MG, QD
     Route: 065
     Dates: start: 20210826
  18. FLUIMUCIL [Concomitant]
     Active Substance: ACETYLCYSTEINE
     Indication: Product used for unknown indication
     Dosage: 2 DOSAGE FORM, QD
     Route: 065
     Dates: start: 20201202
  19. ENTRESTO [Concomitant]
     Active Substance: SACUBITRIL\VALSARTAN
     Indication: Left ventricular dysfunction
     Dosage: 24 MG (0.5 DAY)
     Route: 065
     Dates: start: 20190926
  20. ENTRESTO [Concomitant]
     Active Substance: SACUBITRIL\VALSARTAN
     Dosage: UNK (0.5 DAY) (ONGOING = CHECKED)
     Route: 065
     Dates: start: 20191009
  21. ENTRESTO [Concomitant]
     Active Substance: SACUBITRIL\VALSARTAN
     Dosage: 50 MG (0.5 DAY)
     Route: 065
     Dates: start: 20210826
  22. CHLORPHENIRAMINE MALEATE [Concomitant]
     Active Substance: CHLORPHENIRAMINE MALEATE
     Indication: Product used for unknown indication
     Dosage: 10 MG, TIW
     Route: 065
     Dates: start: 20190328, end: 20190711
  23. CHLORPHENIRAMINE MALEATE [Concomitant]
     Active Substance: CHLORPHENIRAMINE MALEATE
     Dosage: 10 MG, TIW
     Route: 065
     Dates: start: 20201021
  24. DEXAMETHASONE [Concomitant]
     Active Substance: DEXAMETHASONE
     Indication: Product used for unknown indication
     Dosage: 4 MG, TIW
     Route: 065
     Dates: start: 20201021
  25. PANTOPRAZOLE SODIUM [Concomitant]
     Active Substance: PANTOPRAZOLE SODIUM
     Indication: Product used for unknown indication
     Dosage: 20 MG, QD
     Route: 065
     Dates: start: 20190926
  26. PANTOPRAZOLE SODIUM [Concomitant]
     Active Substance: PANTOPRAZOLE SODIUM
     Dosage: 40 MG, QD
     Route: 065
     Dates: start: 20201223
  27. BISOPROLOL FUMARATE [Concomitant]
     Active Substance: BISOPROLOL FUMARATE
     Indication: Left ventricular dysfunction
     Dosage: 2.5 MG (0.5 DAY)
     Route: 065
     Dates: start: 20190926
  28. BISOPROLOL FUMARATE [Concomitant]
     Active Substance: BISOPROLOL FUMARATE
     Dosage: UNK
     Route: 065
     Dates: start: 20191009
  29. BISOPROLOL FUMARATE [Concomitant]
     Active Substance: BISOPROLOL FUMARATE
     Dosage: 2.5 MG (0.5 DAY)
     Route: 065
     Dates: start: 20210826, end: 20220222
  30. BISOPROLOL FUMARATE [Concomitant]
     Active Substance: BISOPROLOL FUMARATE
     Dosage: 2.5 MG (0.5 DAY)
     Route: 065
     Dates: start: 20220223
  31. LASIX [Concomitant]
     Active Substance: FUROSEMIDE
     Indication: Left ventricular dysfunction
     Dosage: 25 MG, QD
     Route: 065
     Dates: start: 20191009
  32. FUROSEMIDE [Concomitant]
     Active Substance: FUROSEMIDE
     Indication: Left ventricular dysfunction
     Dosage: 25 MG, QD
     Route: 065
     Dates: start: 20191009
  33. FUROSEMIDE [Concomitant]
     Active Substance: FUROSEMIDE
     Dosage: 25 MG, QD
     Route: 065
     Dates: start: 20210826
  34. METHYLPREDNISOLONE [Concomitant]
     Active Substance: METHYLPREDNISOLONE
     Indication: Product used for unknown indication
     Dosage: 125 MG, TIW
     Route: 065
     Dates: start: 20190418
  35. NEULASTA [Concomitant]
     Active Substance: PEGFILGRASTIM
     Indication: Product used for unknown indication
     Dosage: 6 MG, TIW
     Route: 065
     Dates: start: 20190328
  36. ACETAMINOPHEN [Concomitant]
     Active Substance: ACETAMINOPHEN
     Indication: Product used for unknown indication
     Dosage: 1 G
     Route: 065
  37. WHOLE BLOOD [Concomitant]
     Active Substance: WHOLE BLOOD
     Indication: Anaemia
     Dosage: UNK
     Route: 065
     Dates: start: 20220105

REACTIONS (3)
  - Oxygen saturation decreased [Recovered/Resolved]
  - Anaemia [Recovered/Resolved]
  - Anaemia [Recovered/Resolved]

NARRATIVE: CASE EVENT DATE: 20220106
